FAERS Safety Report 13653875 (Version 1)
Quarter: 2017Q2

REPORT INFORMATION
  Report Type: Spontaneous
  Country: CA (occurrence: CA)
  Receive Date: 20170614
  Receipt Date: 20170614
  Transmission Date: 20170830
  Serious: Yes (Hospitalization)
  Sender: FDA-Public Use
  Company Number: CA-BAUSCH-BL-2017-018682

PATIENT
  Age: 31 Year
  Sex: Female

DRUGS (1)
  1. NIDAGEL VAGINAL GEL [Suspect]
     Active Substance: METRONIDAZOLE
     Indication: BACTERIAL VAGINOSIS
     Route: 067

REACTIONS (2)
  - Metrorrhagia [Recovered/Resolved]
  - Vaginal haemorrhage [Recovered/Resolved]
